FAERS Safety Report 25486610 (Version 2)
Quarter: 2025Q3

REPORT INFORMATION
  Report Type: Spontaneous
  Country: US (occurrence: US)
  Receive Date: 20250627
  Receipt Date: 20250704
  Transmission Date: 20251021
  Serious: Yes (Life-Threatening, Hospitalization, Other)
  Sender: AUROBINDO
  Company Number: US-MLMSERVICE-20250604-PI532969-00247-1

PATIENT
  Age: 16 Year
  Sex: Male
  Weight: 75 kg

DRUGS (4)
  1. ONDANSETRON [Suspect]
     Active Substance: ONDANSETRON
     Indication: Nausea
     Route: 065
  2. ONDANSETRON [Suspect]
     Active Substance: ONDANSETRON
     Indication: Gastritis
     Route: 065
  3. ONDANSETRON [Suspect]
     Active Substance: ONDANSETRON
     Indication: Vomiting
  4. IBUPROFEN [Concomitant]
     Active Substance: IBUPROFEN
     Indication: Nausea
     Route: 065

REACTIONS (3)
  - Tubulointerstitial nephritis [Recovered/Resolved]
  - Posterior reversible encephalopathy syndrome [Recovered/Resolved]
  - Seizure [Recovered/Resolved]
